FAERS Safety Report 9177734 (Version 2)
Quarter: 2013Q2

REPORT INFORMATION
  Report Type: Spontaneous
  Country: US (occurrence: None)
  Receive Date: 20120531
  Receipt Date: 20121130
  Transmission Date: 20140414
  Serious: Yes (Other)
  Sender: FDA-Public Use
  Company Number: US201112006948

PATIENT
  Age: 35 Year
  Sex: Female
  Weight: 93 kg

DRUGS (5)
  1. BYETTA [Suspect]
     Dates: start: 200912, end: 201001
  2. VIVELLE (ESTRADIOL) PATCH [Concomitant]
  3. CLINDAMYCIN (CLINDAMYCIN) [Concomitant]
  4. CEPHALEXIN (CEFALEXIN) [Concomitant]
  5. NAPROXEN (NAPROXEN) [Concomitant]

REACTIONS (1)
  - Pancreatitis [None]
